FAERS Safety Report 9190496 (Version 1)
Quarter: 2013Q1

REPORT INFORMATION
  Report Type: Spontaneous
  Country: DK (occurrence: DK)
  Receive Date: 20130326
  Receipt Date: 20130326
  Transmission Date: 20140127
  Serious: Yes (Hospitalization)
  Sender: FDA-Public Use
  Company Number: DK-B.I. PHARMACEUTICALS,INC./RIDGEFIELD-2013-SW-00162DB

PATIENT
  Age: 73 Year
  Sex: Male
  Weight: 66 kg

DRUGS (2)
  1. TRAJENTA [Suspect]
     Indication: TYPE 2 DIABETES MELLITUS
     Dosage: 5 MG
     Route: 048
     Dates: start: 20130219, end: 20130308
  2. KREON [Concomitant]

REACTIONS (1)
  - Pancreatitis acute [Not Recovered/Not Resolved]
